FAERS Safety Report 23669676 (Version 1)
Quarter: 2024Q1

REPORT INFORMATION
  Report Type: Spontaneous
  Country: US (occurrence: US)
  Receive Date: 20240325
  Receipt Date: 20240325
  Transmission Date: 20240410
  Serious: Yes (Other)
  Sender: FDA-Public Use
  Company Number: US-PFIZER INC-PV202400039810

PATIENT
  Sex: Female

DRUGS (1)
  1. IBRANCE [Suspect]
     Active Substance: PALBOCICLIB
     Indication: Breast cancer metastatic
     Dosage: EVERY OTHER WEEK
     Dates: start: 2019

REACTIONS (4)
  - Autoimmune disorder [Unknown]
  - White blood cell count decreased [Unknown]
  - Diarrhoea [Unknown]
  - Off label use [Unknown]
